FAERS Safety Report 8271017-4 (Version None)
Quarter: 2012Q2

REPORT INFORMATION
  Report Type: 
  Country: None (occurrence: None)
  Receive Date: 20120406
  Receipt Date: 20120327
  Transmission Date: 20120825
  Serious: Yes (Other)
  Sender: FDA-Public Use
  Company Number: PHHY2011JP95083

PATIENT
  Age: 73 Year
  Sex: Female

DRUGS (3)
  1. LUCENTIS [Suspect]
     Indication: AGE-RELATED MACULAR DEGENERATION
     Dosage: 0.05 ML ONCE EY
     Dates: start: 20090818, end: 20090818
  2. VISUDYNE [Suspect]
     Indication: AGE-RELATED MACULAR DEGENERATION
     Dates: start: 20090821, end: 20090821
  3. GATIFLOXACIN [Concomitant]

REACTIONS (2)
  - CHOROIDAL DYSTROPHY [None]
  - RETINAL DETACHMENT [None]
